FAERS Safety Report 9486579 (Version 1)
Quarter: 2013Q3

REPORT INFORMATION
  Report Type: Spontaneous
  Country: JP (occurrence: JP)
  Receive Date: 20130829
  Receipt Date: 20130829
  Transmission Date: 20140515
  Serious: Yes (Death, Other)
  Sender: FDA-Public Use
  Company Number: PHHY2013JP093605

PATIENT
  Sex: Male

DRUGS (4)
  1. ZOLEDRONATE [Suspect]
     Indication: METASTASES TO BONE
     Dosage: 4 MG, UNK
     Route: 041
  2. ZOLEDRONATE [Suspect]
     Dosage: 3 MG, UNK
     Route: 041
  3. HEMODIALYSIS [Concomitant]
     Dosage: UNK UKN, UNK
     Dates: start: 201010
  4. TRAMAL [Concomitant]
     Dosage: UNK UKN, UNK

REACTIONS (4)
  - Prostate cancer [Fatal]
  - Malignant neoplasm progression [Fatal]
  - Blood parathyroid hormone increased [Unknown]
  - Blood calcium decreased [Unknown]
